FAERS Safety Report 9402523 (Version 2)
Quarter: 2013Q3

REPORT INFORMATION
  Report Type: Spontaneous
  Country: FR (occurrence: FR)
  Receive Date: 20130716
  Receipt Date: 20130726
  Transmission Date: 20140515
  Serious: Yes (Hospitalization)
  Sender: FDA-Public Use
  Company Number: FR-NOVOPROD-382656

PATIENT
  Age: 78 Year
  Sex: Female

DRUGS (10)
  1. VICTOZA [Suspect]
     Indication: TYPE 2 DIABETES MELLITUS
     Dosage: 0.6 MG, QD
     Route: 058
     Dates: start: 201303
  2. VICTOZA [Suspect]
     Dosage: 1.2 MG, QD
     Route: 058
     Dates: end: 20130527
  3. GLICLAZIDE [Concomitant]
     Dosage: 60 MG, QD
     Route: 065
  4. METFORMINE [Concomitant]
     Dosage: 1000 MG, QD
     Route: 065
     Dates: end: 20130527
  5. COOLMETEC [Concomitant]
     Dosage: UNK
     Route: 065
  6. AMLOR [Concomitant]
     Dosage: 10 MG
     Route: 065
  7. EBIXA [Concomitant]
     Dosage: 10 MG
     Route: 065
  8. ARICEPT [Concomitant]
     Dosage: 10 MG
     Route: 065
  9. LEVOTHYROX [Concomitant]
     Dosage: UNK
     Route: 065
  10. INEXIUM                            /01479302/ [Concomitant]
     Dosage: UNK
     Route: 065

REACTIONS (6)
  - Weight decreased [Recovering/Resolving]
  - Vomiting [Recovered/Resolved]
  - Diabetes mellitus inadequate control [Unknown]
  - Renal failure acute [Recovered/Resolved]
  - Constipation [Unknown]
  - Decreased appetite [Unknown]
